FAERS Safety Report 4988358-6 (Version None)
Quarter: 2006Q2

REPORT INFORMATION
  Report Type: 
  Country: None (occurrence: None)
  Receive Date: 20060502
  Receipt Date: 20060322
  Transmission Date: 20061013
  Serious: Yes (Hospitalization)
  Sender: FDA-Public Use
  Company Number: US-AMGEN-STX173386

PATIENT
  Sex: Female

DRUGS (8)
  1. ENBREL [Suspect]
     Indication: RHEUMATOID ARTHRITIS
     Dates: start: 20050101, end: 20060101
  2. FOSAMAX [Concomitant]
     Dates: start: 20030101
  3. SYNTHROID [Concomitant]
  4. ACIPHEX [Concomitant]
  5. METOPROLOL SUCCINATE [Concomitant]
  6. LASIX [Concomitant]
  7. COLCHICINE [Concomitant]
  8. VALIUM [Concomitant]

REACTIONS (5)
  - CONDITION AGGRAVATED [None]
  - HYPERSENSITIVITY [None]
  - LARYNGOSPASM [None]
  - URTICARIA [None]
  - VOCAL CORD THICKENING [None]
